FAERS Safety Report 10066827 (Version 2)
Quarter: 2014Q2

REPORT INFORMATION
  Report Type: Spontaneous
  Country: US (occurrence: US)
  Receive Date: 20140408
  Receipt Date: 20140617
  Transmission Date: 20141212
  Serious: No
  Sender: FDA-Public Use
  Company Number: US-009507513-1403USA013310

PATIENT
  Age: 63 Year
  Sex: Female

DRUGS (5)
  1. NASONEX [Suspect]
     Indication: RHINITIS ALLERGIC
     Dosage: 2 SPRAYS INTO EACH NOSTRIL, ONCE DAILY
     Route: 045
  2. CLARINEX [Concomitant]
  3. SINGULAIR [Concomitant]
  4. MUCINEX D [Concomitant]
  5. GUAIFENESIN [Concomitant]

REACTIONS (6)
  - Therapeutic response decreased [Unknown]
  - Underdose [Unknown]
  - Drug ineffective [Recovered/Resolved]
  - Product container issue [Unknown]
  - Drug dose omission [Unknown]
  - Dyspnoea [Unknown]
